FAERS Safety Report 5465231-0 (Version None)
Quarter: 2007Q3

REPORT INFORMATION
  Report Type: 
  Country: None (occurrence: None)
  Receive Date: 20070919
  Receipt Date: 20070919
  Transmission Date: 20080115
  Serious: Yes (Death)
  Sender: FDA-Public Use
  Company Number: None

PATIENT
  Sex: Male
  Weight: 60 kg

DRUGS (3)
  1. FLUDARABINE PHOSPHATE [Suspect]
     Indication: ACUTE MYELOID LEUKAEMIA
     Dosage: 25 MG/M2 DAILY TIMES 5 IV
     Route: 042
     Dates: start: 20070731, end: 20070804
  2. BUSULFAN [Suspect]
     Dosage: 8800MCGR.MIN/L DOSE DAILY TIMES 4 IV
     Route: 042
     Dates: start: 20070801, end: 20070804
  3. CAMPATH [Concomitant]

REACTIONS (11)
  - ABDOMINAL PAIN UPPER [None]
  - ASCITES [None]
  - BACTERIAL INFECTION [None]
  - BLOOD CREATININE INCREASED [None]
  - BLOOD CULTURE POSITIVE [None]
  - DEPRESSED LEVEL OF CONSCIOUSNESS [None]
  - HEPATOMEGALY [None]
  - INTERNATIONAL NORMALISED RATIO INCREASED [None]
  - OEDEMA DUE TO HEPATIC DISEASE [None]
  - OEDEMA PERIPHERAL [None]
  - PLEURAL EFFUSION [None]
